FAERS Safety Report 9271225 (Version 1)
Quarter: 2013Q2

REPORT INFORMATION
  Report Type: Report from Study
  Country: PH (occurrence: PH)
  Receive Date: 20130506
  Receipt Date: 20130506
  Transmission Date: 20140414
  Serious: Yes (Death)
  Sender: FDA-Public Use
  Company Number: PHHY2013PH043484

PATIENT
  Sex: 0

DRUGS (2)
  1. GLIVEC [Suspect]
     Dosage: 400 MG, UNK
     Route: 048
     Dates: start: 20110801, end: 20111213
  2. GLIVEC [Suspect]
     Dosage: 600 MG, UNK
     Route: 048
     Dates: start: 20111213

REACTIONS (1)
  - Death [Fatal]
